FAERS Safety Report 5293956-9 (Version None)
Quarter: 2007Q2

REPORT INFORMATION
  Report Type: 
  Country: None (occurrence: None)
  Receive Date: 20070405
  Receipt Date: 20070327
  Transmission Date: 20071010
  Serious: Yes (Other)
  Sender: FDA-Public Use
  Company Number: 2007BI006747

PATIENT
  Age: 35 Year
  Sex: Female

DRUGS (2)
  1. NATALIZUMAB [Suspect]
     Indication: MULTIPLE SCLEROSIS
     Dosage: 300 MG;QM;IV
     Route: 042
     Dates: start: 20070220
  2. AMITRIPTYLINE HCL [Concomitant]

REACTIONS (9)
  - AGITATION [None]
  - BACK PAIN [None]
  - CHILLS [None]
  - COUGH [None]
  - DYSPNOEA [None]
  - INFUSION RELATED REACTION [None]
  - LUNG INFECTION [None]
  - NO THERAPEUTIC RESPONSE [None]
  - PYREXIA [None]
